FAERS Safety Report 17420783 (Version 1)
Quarter: 2020Q1

REPORT INFORMATION
  Report Type: Spontaneous
  Country: US (occurrence: US)
  Receive Date: 20200214
  Receipt Date: 20200214
  Transmission Date: 20200409
  Serious: No
  Sender: FDA-Public Use
  Company Number: US-AKRON, INC.-2080415

PATIENT
  Sex: Male

DRUGS (1)
  1. COSOPT PF [Suspect]
     Active Substance: DORZOLAMIDE HYDROCHLORIDE\TIMOLOL MALEATE
     Route: 047

REACTIONS (6)
  - Eye irritation [Recovering/Resolving]
  - Off label use [Unknown]
  - Ocular hyperaemia [Recovering/Resolving]
  - Dyspnoea [None]
  - Eye pruritus [Recovering/Resolving]
  - Contraindicated product administered [Unknown]
